FAERS Safety Report 4889234-X (Version None)
Quarter: 2006Q1

REPORT INFORMATION
  Report Type: 
  Country: None (occurrence: None)
  Receive Date: 20060124
  Receipt Date: 20060120
  Transmission Date: 20060701
  Serious: Yes (Disabling)
  Sender: FDA-Public Use
  Company Number: JP-BOEHRINGER INGELHEIM PHARMACEUTICALS, INC.-2006-BP-00694NB

PATIENT
  Sex: Female

DRUGS (2)
  1. BI-SIFROL TABLETS [Suspect]
     Indication: PARKINSON'S DISEASE
  2. MADOPAR (LEVODOPA_BENSERAZIDE HYDROCHLORIDE) [Concomitant]
     Indication: PARKINSON'S DISEASE
     Route: 048
     Dates: end: 20051125

REACTIONS (2)
  - CARDIO-RESPIRATORY ARREST [None]
  - CHOKING [None]
